FAERS Safety Report 24550697 (Version 1)
Quarter: 2024Q4

REPORT INFORMATION
  Report Type: Spontaneous
  Country: US (occurrence: US)
  Receive Date: 20241025
  Receipt Date: 20241025
  Transmission Date: 20250115
  Serious: No
  Sender: INSUD PHARMA
  Company Number: US-INSUD PHARMA-2410US07938

PATIENT

DRUGS (2)
  1. SLYND [Suspect]
     Active Substance: DROSPIRENONE
     Indication: Product used for unknown indication
     Dosage: STARTED 4 DAYS AFTER HER LAST CYCLE ENDED
     Route: 048
     Dates: start: 2024
  2. SLYND [Suspect]
     Active Substance: DROSPIRENONE
     Dosage: UNKNOWN
     Route: 048

REACTIONS (3)
  - Heavy menstrual bleeding [Not Recovered/Not Resolved]
  - Wrong technique in product usage process [Unknown]
  - Amenorrhoea [Unknown]

NARRATIVE: CASE EVENT DATE: 20240101
